FAERS Safety Report 21622040 (Version 2)
Quarter: 2022Q4

REPORT INFORMATION
  Report Type: Spontaneous
  Country: FR (occurrence: FR)
  Receive Date: 20221121
  Receipt Date: 20221221
  Transmission Date: 20230112
  Serious: Yes (Other)
  Sender: FDA-Public Use
  Company Number: None

PATIENT
  Age: 81 Year
  Sex: Male
  Weight: 89 kg

DRUGS (39)
  1. INDAPAMIDE [Interacting]
     Active Substance: INDAPAMIDE
     Indication: Product used for unknown indication
     Dosage: 4 MG, QD
     Route: 048
     Dates: end: 20220829
  2. ONDANSETRON [Interacting]
     Active Substance: ONDANSETRON
     Indication: Prophylaxis of nausea and vomiting
     Dosage: UNK (SELON CYCLE)
     Route: 048
     Dates: start: 202205
  3. PREDNISONE [Interacting]
     Active Substance: PREDNISONE
     Indication: Lymphoma
     Dosage: 120 MG, CYCLIC (C1)
     Route: 048
     Dates: start: 20220505
  4. PREDNISONE [Interacting]
     Active Substance: PREDNISONE
     Dosage: UNK, CYCLIC (C2)
     Route: 048
     Dates: start: 20220527
  5. PREDNISONE [Interacting]
     Active Substance: PREDNISONE
     Dosage: UNK, CYCLIC (C3)
     Route: 048
     Dates: start: 20220617
  6. PREDNISONE [Interacting]
     Active Substance: PREDNISONE
     Dosage: UNK, CYCLIC (C4)
     Route: 048
     Dates: start: 20220708
  7. PREDNISONE [Interacting]
     Active Substance: PREDNISONE
     Dosage: UNK, CYCLIC (C5)
     Route: 048
     Dates: start: 20220808
  8. PERINDOPRIL [Concomitant]
     Active Substance: PERINDOPRIL
     Indication: Product used for unknown indication
     Dosage: 1.25 MG, QD
     Route: 048
  9. SINTROM [Concomitant]
     Active Substance: ACENOCOUMAROL
     Indication: Product used for unknown indication
     Dosage: UNK
     Route: 048
     Dates: start: 2000
  10. CLAMOXYL [Concomitant]
     Indication: Product used for unknown indication
     Dosage: 1 G, QD
     Route: 048
     Dates: start: 202205
  11. AMITRIPTYLINE HYDROCHLORIDE [Concomitant]
     Active Substance: AMITRIPTYLINE HYDROCHLORIDE
     Indication: Product used for unknown indication
     Dosage: UNK
     Route: 048
  12. VINCRISTINE SULFATE [Concomitant]
     Active Substance: VINCRISTINE SULFATE
     Indication: Product used for unknown indication
     Dosage: 2 MG (C1)
     Route: 042
     Dates: start: 20220505
  13. VINCRISTINE SULFATE [Concomitant]
     Active Substance: VINCRISTINE SULFATE
     Dosage: UNK (C2)
     Route: 042
     Dates: start: 20220527
  14. VINCRISTINE SULFATE [Concomitant]
     Active Substance: VINCRISTINE SULFATE
     Dosage: UNK (C3)
     Route: 042
     Dates: start: 20220617
  15. VINCRISTINE SULFATE [Concomitant]
     Active Substance: VINCRISTINE SULFATE
     Dosage: UNK (C4)
     Route: 042
     Dates: start: 20220708
  16. VINCRISTINE SULFATE [Concomitant]
     Active Substance: VINCRISTINE SULFATE
     Dosage: UNK (C5)
     Route: 042
     Dates: start: 20220808
  17. VALACYCLOVIR HYDROCHLORIDE [Concomitant]
     Active Substance: VALACYCLOVIR HYDROCHLORIDE
     Indication: Product used for unknown indication
     Dosage: 1 G, QD
     Route: 048
     Dates: start: 202205
  18. RITUXIMAB [Concomitant]
     Active Substance: RITUXIMAB
     Indication: Product used for unknown indication
     Dosage: UNK (C1)
     Route: 042
     Dates: start: 20220505
  19. RITUXIMAB [Concomitant]
     Active Substance: RITUXIMAB
     Dosage: UNK (C2)
     Route: 042
     Dates: start: 20220527
  20. RITUXIMAB [Concomitant]
     Active Substance: RITUXIMAB
     Dosage: UNK (C3)
     Route: 042
     Dates: start: 20220617
  21. RITUXIMAB [Concomitant]
     Active Substance: RITUXIMAB
     Dosage: UNK (C4)
     Route: 042
     Dates: start: 20220708
  22. RITUXIMAB [Concomitant]
     Active Substance: RITUXIMAB
     Dosage: UNK (C5)
     Route: 042
     Dates: start: 20220808
  23. LEUCOVORIN CALCIUM [Concomitant]
     Active Substance: LEUCOVORIN CALCIUM
     Indication: Product used for unknown indication
     Dosage: 1 DOSAGE FORM, QW
     Route: 048
     Dates: start: 202205
  24. BACTRIM [Concomitant]
     Active Substance: SULFAMETHOXAZOLE\TRIMETHOPRIM
     Indication: Product used for unknown indication
     Dosage: 3 DOSAGE FORM, QW
     Route: 048
     Dates: start: 202205
  25. CYCLOPHOSPHAMIDE [Concomitant]
     Active Substance: CYCLOPHOSPHAMIDE
     Indication: Product used for unknown indication
     Dosage: UNK (C1)
     Route: 042
     Dates: start: 20220505
  26. CYCLOPHOSPHAMIDE [Concomitant]
     Active Substance: CYCLOPHOSPHAMIDE
     Dosage: UNK (C2)
     Route: 042
     Dates: start: 20220527
  27. CYCLOPHOSPHAMIDE [Concomitant]
     Active Substance: CYCLOPHOSPHAMIDE
     Dosage: UNK (C3)
     Route: 042
     Dates: start: 20220617
  28. CYCLOPHOSPHAMIDE [Concomitant]
     Active Substance: CYCLOPHOSPHAMIDE
     Dosage: UNK (C4)
     Route: 042
     Dates: start: 20220708
  29. CYCLOPHOSPHAMIDE [Concomitant]
     Active Substance: CYCLOPHOSPHAMIDE
     Dosage: UNK (C5)
     Route: 042
     Dates: start: 20220808
  30. BIMATOPROST\TIMOLOL [Concomitant]
     Active Substance: BIMATOPROST\TIMOLOL
     Indication: Product used for unknown indication
     Dosage: UNK (300 MICROGRAMS/ML PLUS 5 MG/ML)
  31. DOXORUBICIN [Concomitant]
     Active Substance: DOXORUBICIN
     Indication: Product used for unknown indication
     Dosage: 50 MG, CYCLIC (C1)
     Route: 042
     Dates: start: 20220505
  32. DOXORUBICIN [Concomitant]
     Active Substance: DOXORUBICIN
     Dosage: UNK, CYCLIC (C2)
     Route: 042
     Dates: start: 20220527
  33. DOXORUBICIN [Concomitant]
     Active Substance: DOXORUBICIN
     Dosage: UNK, CYCLIC (C3)
     Route: 042
     Dates: start: 20220617
  34. DOXORUBICIN [Concomitant]
     Active Substance: DOXORUBICIN
     Dosage: UNK, CYCLIC (C4)
     Route: 042
     Dates: start: 20220708
  35. DOXORUBICIN [Concomitant]
     Active Substance: DOXORUBICIN
     Dosage: UNK, CYCLIC (C5)
     Route: 042
     Dates: start: 20220808
  36. MESNA [Concomitant]
     Active Substance: MESNA
     Indication: Product used for unknown indication
     Dosage: 960 MG, CYCLIC
     Route: 042
     Dates: start: 20220505
  37. FILGRASTIM [Concomitant]
     Active Substance: FILGRASTIM
     Indication: Product used for unknown indication
     Dosage: 4 DOSAGE FORM (30 MU/0,5 ML)
     Route: 058
     Dates: start: 202205
  38. SIMVASTATIN [Concomitant]
     Active Substance: SIMVASTATIN
     Indication: Product used for unknown indication
     Dosage: UNK
     Route: 048
  39. TAMSULOSIN [Concomitant]
     Active Substance: TAMSULOSIN
     Indication: Product used for unknown indication
     Dosage: UNK
     Route: 048

REACTIONS (2)
  - Hypokalaemia [Recovered/Resolved]
  - Drug interaction [Recovered/Resolved]

NARRATIVE: CASE EVENT DATE: 20220718
